FAERS Safety Report 6245974-1 (Version None)
Quarter: 2009Q2

REPORT INFORMATION
  Report Type: 
  Country: None (occurrence: None)
  Receive Date: 20090626
  Receipt Date: 20080915
  Transmission Date: 20091009
  Serious: Yes (Other)
  Sender: FDA-Public Use
  Company Number: A0747762A

PATIENT
  Age: 27 Year
  Sex: Male

DRUGS (3)
  1. IMITREX [Suspect]
     Indication: MIGRAINE
     Dosage: 100MG AS REQUIRED
     Route: 048
     Dates: start: 19980101
  2. AMITRIPTYLINE HCL [Concomitant]
  3. ADVIL [Concomitant]

REACTIONS (2)
  - ANGINA PECTORIS [None]
  - DRUG INEFFECTIVE [None]
